FAERS Safety Report 4573658-4 (Version None)
Quarter: 2005Q1

REPORT INFORMATION
  Report Type: 
  Country: None (occurrence: None)
  Receive Date: 20050203
  Receipt Date: 20050117
  Transmission Date: 20050727
  Serious: No
  Sender: FDA-Public Use
  Company Number: 2005AC00104

PATIENT
  Age: 21 Year
  Sex: Female
  Weight: 69 kg

DRUGS (4)
  1. BUPIVACAINE [Suspect]
     Indication: SPINAL ANAESTHESIA
     Dosage: 12 MG ONCE IT
     Route: 037
  2. MORPHINE [Suspect]
     Indication: SPINAL ANAESTHESIA
     Dosage: 0.2 MG ONCE IT
     Route: 037
  3. FENTANYL [Suspect]
     Indication: SPINAL ANAESTHESIA
     Dosage: 5 UG ONCE IT
     Route: 037
  4. COCAINE [Suspect]
     Indication: DRUG ABUSER

REACTIONS (11)
  - BRADYARRHYTHMIA [None]
  - BREECH PRESENTATION [None]
  - CAESAREAN SECTION [None]
  - CARDIOVASCULAR DISORDER [None]
  - DRUG EXPOSURE DURING PREGNANCY [None]
  - DRUG SCREEN POSITIVE [None]
  - ELECTROCARDIOGRAM ST SEGMENT DEPRESSION [None]
  - HYPOTENSION [None]
  - ISCHAEMIA [None]
  - MATERNAL USE OF ILLICIT DRUGS [None]
  - POST PROCEDURAL COMPLICATION [None]
